FAERS Safety Report 8333863-8 (Version None)
Quarter: 2012Q2

REPORT INFORMATION
  Report Type: 
  Country: None (occurrence: None)
  Receive Date: 20120503
  Receipt Date: 20101229
  Transmission Date: 20120825
  Serious: No
  Sender: FDA-Public Use
  Company Number: US-TEVA-2011000018

PATIENT
  Sex: Female
  Weight: 48.124 kg

DRUGS (2)
  1. NUVIGIL [Suspect]
     Indication: FATIGUE
     Route: 048
     Dates: start: 20100101
  2. NUVIGIL [Suspect]

REACTIONS (3)
  - NAUSEA [None]
  - DRUG INEFFECTIVE FOR UNAPPROVED INDICATION [None]
  - DRUG PRESCRIBING ERROR [None]
